FAERS Safety Report 6651352-3 (Version None)
Quarter: 2010Q1

REPORT INFORMATION
  Report Type: 
  Country: None (occurrence: None)
  Receive Date: 20100325
  Receipt Date: 20100315
  Transmission Date: 20100710
  Serious: Yes (Hospitalization)
  Sender: FDA-Public Use
  Company Number: US-BRISTOL-MYERS SQUIBB COMPANY-15029408

PATIENT
  Age: 70 Year
  Sex: Female

DRUGS (5)
  1. CYCLOPHOSPHAMIDE [Suspect]
     Indication: BREAST CANCER STAGE II
  2. DOXORUBICIN HCL [Suspect]
     Indication: BREAST CANCER STAGE II
  3. PACLITAXEL [Suspect]
     Indication: BREAST CANCER STAGE II
  4. LETROZOLE [Suspect]
     Indication: BREAST CANCER STAGE II
  5. TAMOXIFEN CITRATE [Suspect]
     Indication: BREAST CANCER STAGE II

REACTIONS (1)
  - ACUTE MYELOID LEUKAEMIA [None]
